FAERS Safety Report 24163213 (Version 2)
Quarter: 2024Q3

REPORT INFORMATION
  Report Type: Spontaneous
  Country: EE (occurrence: EE)
  Receive Date: 20240801
  Receipt Date: 20240909
  Transmission Date: 20241017
  Serious: Yes (Hospitalization, Other)
  Sender: NOVO NORDISK
  Company Number: EE-NOVOPROD-1262382

PATIENT
  Age: 43 Year
  Sex: Male

DRUGS (2)
  1. OZEMPIC [Suspect]
     Active Substance: SEMAGLUTIDE
     Indication: Glucose tolerance impaired
     Dosage: UNK
     Dates: start: 202401
  2. OZEMPIC [Suspect]
     Active Substance: SEMAGLUTIDE
     Indication: Weight control
     Dosage: OZEMPIC 1 MG ONCE PER TWO WEEKS

REACTIONS (9)
  - Urethral stenosis [Unknown]
  - Hydronephrosis [Unknown]
  - Intervertebral discitis [Unknown]
  - Post procedural complication [Unknown]
  - Neoplasm [Unknown]
  - Diverticulitis [Unknown]
  - Fibrosis [Unknown]
  - Product use in unapproved indication [Unknown]
  - Inappropriate schedule of product administration [Unknown]

NARRATIVE: CASE EVENT DATE: 20240101
